FAERS Safety Report 17565790 (Version 2)
Quarter: 2020Q1

REPORT INFORMATION
  Report Type: Spontaneous
  Country: DE (occurrence: DE)
  Receive Date: 20200320
  Receipt Date: 20200331
  Transmission Date: 20200409
  Serious: Yes (Disabling, Other)
  Sender: FDA-Public Use
  Company Number: DE-PFIZER INC-2020115755

PATIENT
  Sex: Male

DRUGS (1)
  1. CYTOTEC [Suspect]
     Active Substance: MISOPROSTOL
     Indication: LABOUR INDUCTION
     Dosage: 150 MG, TOTAL (3/4 TABLET CORRESPONDS TO ABOUT 150MG)
     Dates: start: 20110110, end: 20110110

REACTIONS (7)
  - Foetal distress syndrome [Unknown]
  - Sleep disorder [Recovered/Resolved with Sequelae]
  - Foetal heart rate abnormal [Unknown]
  - Mental disability [Recovered/Resolved with Sequelae]
  - Nocturia [Recovered/Resolved with Sequelae]
  - Speech disorder developmental [Recovered/Resolved with Sequelae]
  - Foetal exposure during delivery [Unknown]

NARRATIVE: CASE EVENT DATE: 20110110
